FAERS Safety Report 18218875 (Version 1)
Quarter: 2020Q3

REPORT INFORMATION
  Report Type: Spontaneous
  Country: US (occurrence: US)
  Receive Date: 20200901
  Receipt Date: 20200901
  Transmission Date: 20201103
  Serious: No
  Sender: FDA-Public Use
  Company Number: US-VERTEX PHARMACEUTICALS-2020-017551

PATIENT
  Age: 36 Year
  Sex: Female
  Weight: 79 kg

DRUGS (5)
  1. PALIPERIDONE. [Concomitant]
     Active Substance: PALIPERIDONE
     Dosage: 3 MILLIGRAM, DAILY
  2. GABAPENTIN. [Suspect]
     Active Substance: GABAPENTIN
     Indication: PRODUCT USED FOR UNKNOWN INDICATION
     Dosage: 1200 MILLIGRAM, NIGHTLY
     Route: 065
     Dates: start: 202005
  3. LEVOTHYROXINE. [Suspect]
     Active Substance: LEVOTHYROXINE
     Indication: PRODUCT USED FOR UNKNOWN INDICATION
     Dosage: 50 MICROGRAM, DAILY
     Route: 065
     Dates: start: 202007
  4. TRIKAFTA [Suspect]
     Active Substance: ELEXACAFTOR\IVACAFTOR\TEZACAFTOR
     Indication: CYSTIC FIBROSIS
     Dosage: 2 TABS (ELEXA/ 50MG TEZA/ 75MG IVA) AM AND 1 TAB (150MG IVA)
     Route: 048
     Dates: start: 20191205
  5. MEPOLIZUMAB [Concomitant]
     Active Substance: MEPOLIZUMAB
     Dosage: 100 MILLIGRAM, SQ, EVERY 28 DAYS
     Route: 058

REACTIONS (1)
  - Muscle twitching [Recovering/Resolving]

NARRATIVE: CASE EVENT DATE: 201912
